FAERS Safety Report 10867058 (Version 2)
Quarter: 2015Q2

REPORT INFORMATION
  Report Type: Spontaneous
  Country: US (occurrence: US)
  Receive Date: 20150225
  Receipt Date: 20150519
  Transmission Date: 20150821
  Serious: Yes (Hospitalization)
  Sender: FDA-Public Use
  Company Number: US-BAYER-2015-028058

PATIENT
  Age: 30 Year
  Sex: Female
  Weight: 126.98 kg

DRUGS (1)
  1. MIRENA [Suspect]
     Active Substance: LEVONORGESTREL
     Dosage: 20 MCG/24HR, CONT
     Route: 015
     Dates: start: 20060227, end: 20100208

REACTIONS (6)
  - Injury [None]
  - Anxiety [None]
  - Depression [None]
  - Emotional distress [None]
  - Pain [None]
  - Uterine perforation [None]

NARRATIVE: CASE EVENT DATE: 2006
